FAERS Safety Report 4271324-6 (Version None)
Quarter: 2004Q1

REPORT INFORMATION
  Report Type: 
  Country: None (occurrence: None)
  Receive Date: 20040114
  Receipt Date: 20040114
  Transmission Date: 20041129
  Serious: No
  Sender: FDA-Public Use
  Company Number: None

PATIENT
  Age: 51 Year
  Sex: Female
  Weight: 95.709 kg

DRUGS (4)
  1. CLODRONATE [Suspect]
     Indication: BREAST CANCER
     Dosage: 1600 MG PO DAILY
     Route: 048
     Dates: start: 20020919, end: 20031202
  2. BREAST EXPANDERS [Concomitant]
  3. TAMOFEN [Concomitant]
  4. PLACEBO [Suspect]
     Indication: BREAST CANCER
     Dosage: 1600MG PO DAILY
     Route: 048
     Dates: start: 20020919, end: 20031202

REACTIONS (2)
  - POSTOPERATIVE INFECTION [None]
  - WOUND INFECTION STAPHYLOCOCCAL [None]
